FAERS Safety Report 9500828 (Version 2)
Quarter: 2013Q3

REPORT INFORMATION
  Report Type: Spontaneous
  Country: BR (occurrence: BR)
  Receive Date: 20130905
  Receipt Date: 20130905
  Transmission Date: 20140515
  Serious: Yes (Other)
  Sender: FDA-Public Use
  Company Number: BR-PFIZER INC-2013246951

PATIENT
  Age: 52 Year
  Sex: Male

DRUGS (1)
  1. FELDENE SL [Suspect]
     Indication: PLANTAR FASCIITIS
     Dosage: 20 MG, 2X/DAY (EVERY 12 HOURS)
     Dates: start: 20130822, end: 20130824

REACTIONS (8)
  - Penile haemorrhage [Not Recovered/Not Resolved]
  - Penis disorder [Recovering/Resolving]
  - Purulence [Recovering/Resolving]
  - Dysuria [Not Recovered/Not Resolved]
  - Skin lesion [Not Recovered/Not Resolved]
  - Penile pain [Recovering/Resolving]
  - Activities of daily living impaired [Not Recovered/Not Resolved]
  - Hypersensitivity [Not Recovered/Not Resolved]
